FAERS Safety Report 21023046 (Version 1)
Quarter: 2022Q2

REPORT INFORMATION
  Report Type: Spontaneous
  Country: IT (occurrence: IT)
  Receive Date: 20220629
  Receipt Date: 20220629
  Transmission Date: 20220721
  Serious: Yes (Hospitalization)
  Sender: FDA-Public Use
  Company Number: IT-ROCHE-3043566

PATIENT
  Age: 67 Year
  Sex: Male
  Weight: 88 kg

DRUGS (33)
  1. DOXORUBICIN HYDROCHLORIDE [Suspect]
     Active Substance: DOXORUBICIN HYDROCHLORIDE
     Indication: Diffuse large B-cell lymphoma
     Dosage: 50 MG/M2, EVERY 3 WEEKS
     Route: 042
     Dates: start: 20220119
  2. METHYLPREDNISOLONE [Suspect]
     Active Substance: METHYLPREDNISOLONE
     Indication: Diffuse large B-cell lymphoma
     Dosage: 80 MG, MOST RECENT DOSE PRIOR TO AE 21FEB2022 9:30 AM
     Route: 048
     Dates: start: 20220119
  3. RITUXIMAB [Suspect]
     Active Substance: RITUXIMAB
     Indication: Diffuse large B-cell lymphoma
     Dosage: 375 MG/M2, EVERY 3 WEEKS; MOST RECENT DOSE PRIOR TO AE 21FEB2022
     Route: 042
     Dates: start: 20220119
  4. VINCRISTINE SULFATE [Suspect]
     Active Substance: VINCRISTINE SULFATE
     Indication: Diffuse large B-cell lymphoma
     Dosage: 1.4 MG/M2, EVERY 3 WEEKS, MOST RECENT DOSE PRIOR TO AE 21FEB2022
     Route: 042
     Dates: start: 20220119
  5. PREDNISONE [Suspect]
     Active Substance: PREDNISONE
     Indication: Diffuse large B-cell lymphoma
     Dosage: 100 MG, MOST RECENT DOSE PRIOR TO AE 25FEB2022 9:30 AM
     Route: 048
     Dates: start: 20220120
  6. CYCLOPHOSPHAMIDE [Suspect]
     Active Substance: CYCLOPHOSPHAMIDE
     Indication: Diffuse large B-cell lymphoma
     Dosage: 750 MG/M2, EVERY 3 WEEKS, MOST RECENT DOSE (250 ML) PRIOR TO AE 21FEB2022
     Route: 042
     Dates: start: 20220119
  7. GLOFITAMAB [Suspect]
     Active Substance: GLOFITAMAB
     Indication: Diffuse large B-cell lymphoma
     Dosage: UNK
  8. GLOFITAMAB [Suspect]
     Active Substance: GLOFITAMAB
     Dosage: 2.5 MG, EVERY 3 WEEKS, MOST RECENT DOSE PRIOR AE 01MAR2022
     Route: 042
     Dates: start: 20220301
  9. CLOREXIDINA [Concomitant]
     Dates: start: 20220113
  10. VALACYCLOVIR HYDROCHLORIDE [Concomitant]
     Active Substance: VALACYCLOVIR HYDROCHLORIDE
     Dates: start: 20220118
  11. ALLOPURINOL [Concomitant]
     Active Substance: ALLOPURINOL
     Indication: Hyperuricaemia
  12. TOCILIZUMAB [Concomitant]
     Active Substance: TOCILIZUMAB
     Indication: Diffuse large B-cell lymphoma
     Dosage: 704 MG, MOST RECENT DOSE PRIOR AE 02MAR2022
     Route: 041
     Dates: start: 20220302
  13. PANTOPRAZOLE SODIUM [Concomitant]
     Active Substance: PANTOPRAZOLE SODIUM
     Dates: start: 20220113
  14. POTASSIUM [Concomitant]
     Active Substance: POTASSIUM
     Dates: start: 20220213
  15. ACETAMINOPHEN [Concomitant]
     Active Substance: ACETAMINOPHEN
     Indication: Cytokine release syndrome
     Dosage: 1000 MG
     Route: 048
     Dates: start: 20220221, end: 20220221
  16. ACETAMINOPHEN [Concomitant]
     Active Substance: ACETAMINOPHEN
     Indication: Pyrexia
     Dosage: UNK
     Dates: start: 20220301, end: 20220302
  17. ACETAMINOPHEN [Concomitant]
     Active Substance: ACETAMINOPHEN
     Dosage: UNK
     Dates: start: 20220205
  18. ACETAMINOPHEN [Concomitant]
     Active Substance: ACETAMINOPHEN
     Dosage: 1000 MG
     Route: 048
     Dates: start: 20220301, end: 20220301
  19. PIPERACILLIN SODIUM\TAZOBACTAM SODIUM [Concomitant]
     Active Substance: PIPERACILLIN SODIUM\TAZOBACTAM SODIUM
     Indication: Pyrexia
     Dates: start: 20220214, end: 20220222
  20. CHLORTHALIDONE [Concomitant]
     Active Substance: CHLORTHALIDONE
     Indication: Hypertension
  21. PREDNISONE [Concomitant]
     Active Substance: PREDNISONE
     Indication: Abdominal pain
  22. ALFUZOSIN [Concomitant]
     Active Substance: ALFUZOSIN
     Indication: Benign prostatic hyperplasia
  23. DEXAMETHASONE [Concomitant]
     Active Substance: DEXAMETHASONE
     Indication: Sinus tachycardia
     Dates: start: 20220301, end: 20220302
  24. DEXAMETHASONE [Concomitant]
     Active Substance: DEXAMETHASONE
     Indication: Cytokine release syndrome
     Dosage: UNK
     Dates: start: 20220305
  25. DEXAMETHASONE [Concomitant]
     Active Substance: DEXAMETHASONE
     Dosage: 20 MG
     Dates: start: 20220301, end: 20220301
  26. LEVOFLOXACIN [Concomitant]
     Active Substance: LEVOFLOXACIN
     Indication: Pyrexia
     Dates: start: 20220205, end: 20220209
  27. DECADRON [Concomitant]
     Active Substance: DEXAMETHASONE
     Indication: Cytokine release syndrome
     Dates: start: 20220310
  28. CEFTRIAXONE [Concomitant]
     Active Substance: CEFTRIAXONE
     Indication: Pyrexia
     Dates: start: 20220212, end: 20220214
  29. AMLODIPINE BESYLATE\PERINDOPRIL ARGININE [Concomitant]
     Active Substance: AMLODIPINE BESYLATE\PERINDOPRIL ARGININE
     Indication: Hypertension
  30. BACTRIM [Concomitant]
     Active Substance: SULFAMETHOXAZOLE\TRIMETHOPRIM
     Dates: start: 20220118
  31. CHLORPHENIRAMINE [Concomitant]
     Active Substance: CHLORPHENIRAMINE
     Dosage: 10 MG
     Route: 042
     Dates: start: 20220301, end: 20220301
  32. CHLORPHENIRAMINE [Concomitant]
     Active Substance: CHLORPHENIRAMINE
     Dosage: 10 MG
     Route: 042
     Dates: start: 20220221, end: 20220221
  33. SIMVASTATIN [Concomitant]
     Active Substance: SIMVASTATIN
     Indication: Dyslipidaemia

REACTIONS (1)
  - Sinus tachycardia [Recovered/Resolved]

NARRATIVE: CASE EVENT DATE: 20220305
